FAERS Safety Report 6431168-3 (Version None)
Quarter: 2009Q4

REPORT INFORMATION
  Report Type: 
  Country: None (occurrence: None)
  Receive Date: 20091105
  Receipt Date: 20091105
  Transmission Date: 20100525
  Serious: No
  Sender: FDA-Public Use
  Company Number: None

PATIENT
  Age: 78 Year
  Sex: Female

DRUGS (1)
  1. LEXISCAN [Suspect]
     Dates: start: 20091019

REACTIONS (3)
  - ABDOMINAL DISCOMFORT [None]
  - FLUSHING [None]
  - NAUSEA [None]
